FAERS Safety Report 19853874 (Version 3)
Quarter: 2022Q3

REPORT INFORMATION
  Report Type: Report from Study
  Country: DE (occurrence: DE)
  Receive Date: 20210920
  Receipt Date: 20220630
  Transmission Date: 20221026
  Serious: Yes (Hospitalization)
  Sender: FDA-Public Use
  Company Number: DE-NOVARTISPH-NVSC2021DE207340

PATIENT
  Sex: Female
  Weight: 90 kg

DRUGS (2)
  1. COSENTYX [Suspect]
     Active Substance: SECUKINUMAB
     Indication: Psoriasis
     Dosage: 300 MG, BIW
     Route: 058
     Dates: start: 20170421, end: 201801
  2. COSENTYX [Suspect]
     Active Substance: SECUKINUMAB
     Indication: Psoriatic arthropathy
     Dosage: 300 MG, BIW
     Route: 058
     Dates: start: 201801, end: 20180511

REACTIONS (3)
  - Psoriasis area severity index increased [Recovered/Resolved]
  - Skin disorder [Recovered/Resolved]
  - Product use issue [Unknown]

NARRATIVE: CASE EVENT DATE: 20180507
